FAERS Safety Report 7037244-9 (Version None)
Quarter: 2010Q4

REPORT INFORMATION
  Report Type: 
  Country: None (occurrence: None)
  Receive Date: 20101011
  Receipt Date: 20100929
  Transmission Date: 20110411
  Serious: Yes (Hospitalization)
  Sender: FDA-Public Use
  Company Number: NL-PFIZER INC-2010116584

PATIENT
  Age: 65 Year
  Sex: Female

DRUGS (5)
  1. NEURONTIN [Suspect]
     Dosage: 600 MG, 3X/DAY
     Dates: start: 20100201, end: 20100201
  2. TRAMADOL [Suspect]
     Dosage: UNK
     Dates: start: 20090201, end: 20100201
  3. FOLIC ACID [Concomitant]
     Dosage: UNK
     Dates: start: 20100201, end: 20100301
  4. SIMVASTATIN [Concomitant]
     Dosage: UNK
     Dates: start: 19990915
  5. PANTOPRAZOLE SODIUM [Concomitant]
     Dosage: UNK
     Dates: start: 20100127, end: 20100226

REACTIONS (2)
  - MALAISE [None]
  - PAIN [None]
